FAERS Safety Report 9511798 (Version 1)
Quarter: 2013Q1

REPORT INFORMATION
  Report Type: Spontaneous
  Country: US (occurrence: None)
  Receive Date: 20130305
  Receipt Date: 20130305
  Transmission Date: 20140127
  Serious: Yes (Hospitalization)
  Sender: FDA-Public Use
  Company Number: 163-21880-12103502

PATIENT
  Age: 85 Year
  Sex: Female

DRUGS (9)
  1. REVLIMID [Suspect]
     Indication: MYELODYSPLASTIC SYNDROME
     Dosage: 5 MG, 28 IN 28 D, PO
     Route: 048
     Dates: start: 20121008
  2. ALENDRONATE SODIUM (ALENDRONATE SODIUM) (UNKNOWN) [Concomitant]
  3. ALPRAZOLAM (ALPRAZOLAM) (UNKNOWN) (ALPRAZOLAM) [Concomitant]
  4. APAP (PARACETAMOL) (UNKNOWN) [Concomitant]
  5. ASPIRIN (ACETYLSALICYLIC ACID) (UNKNOWN) (ACETYLSALICYLIC ACID) [Concomitant]
  6. CALCIUM (+D 9OS-CAL) (UNKNOWN) [Concomitant]
  7. DIOVAN (VALSARTAN) (UNKNOWN) [Concomitant]
  8. PROCRIT (ERYTHROPOETIN) (UNKNOWN) [Concomitant]
  9. LIPITOR (ATORVASTATIN) (UNKNOWN) [Concomitant]

REACTIONS (1)
  - Anaemia [None]
